FAERS Safety Report 5083690-2 (Version None)
Quarter: 2006Q3

REPORT INFORMATION
  Report Type: 
  Country: None (occurrence: None)
  Receive Date: 20060818
  Receipt Date: 20060808
  Transmission Date: 20061208
  Serious: Yes (Hospitalization)
  Sender: FDA-Public Use
  Company Number: US-JNJFOC-20060704191

PATIENT
  Age: 52 Year
  Sex: Female

DRUGS (5)
  1. TOPAMAX [Suspect]
     Route: 048
  2. TOPAMAX [Suspect]
     Indication: MIGRAINE PROPHYLAXIS
     Route: 048
  3. ZYRTEC [Concomitant]
  4. FIORICET [Concomitant]
  5. INDERAL LA [Concomitant]

REACTIONS (1)
  - ARTERIOSPASM CORONARY [None]
